FAERS Safety Report 5627745-X (Version None)
Quarter: 2008Q1

REPORT INFORMATION
  Report Type: 
  Country: None (occurrence: None)
  Receive Date: 20080215
  Receipt Date: 20080212
  Transmission Date: 20080703
  Serious: Yes (Other)
  Sender: FDA-Public Use
  Company Number: A0699050A

PATIENT
  Age: 11 Year
  Sex: Male
  Weight: 41.4 kg

DRUGS (4)
  1. LAMICTAL [Suspect]
     Indication: DRUG USE FOR UNKNOWN INDICATION
     Dosage: 75MG AT NIGHT
     Route: 048
     Dates: start: 20070914, end: 20071207
  2. METHYLPHENIDATE HCL [Suspect]
     Dosage: 1PAT UNKNOWN
     Route: 062
     Dates: start: 20071117, end: 20071207
  3. RISPERDAL [Concomitant]
  4. ZYPREXA [Concomitant]
     Indication: AGITATION
     Dosage: 1.25MG AT NIGHT
     Route: 048
     Dates: start: 20070101

REACTIONS (5)
  - BLINDNESS [None]
  - DIPLOPIA [None]
  - HALLUCINATION, VISUAL [None]
  - VISION BLURRED [None]
  - VISUAL DISTURBANCE [None]
